FAERS Safety Report 15013187 (Version 2)
Quarter: 2018Q3

REPORT INFORMATION
  Report Type: Spontaneous
  Country: IT (occurrence: IT)
  Receive Date: 20180614
  Receipt Date: 20180711
  Transmission Date: 20181010
  Serious: Yes (Other)
  Sender: FDA-Public Use
  Company Number: IT-ALEXION PHARMACEUTICALS INC-A201807235

PATIENT

DRUGS (5)
  1. DEFIBROTIDE [Suspect]
     Active Substance: DEFIBROTIDE (BOVINE)
     Indication: PROPHYLAXIS
     Dosage: 25 MG/KG/DAY
     Route: 065
  2. BUSULFAN. [Suspect]
     Active Substance: BUSULFAN
     Indication: STEM CELL TRANSPLANT
     Dosage: 80 MG/M2, QID (TARGETED AUC 85 MGX H/L)
     Route: 042
  3. RITUXIMAB. [Suspect]
     Active Substance: RITUXIMAB
     Indication: ANTI-PLATELET ANTIBODY
     Dosage: 375 MG/M2 QW
     Route: 065
  4. DEFIBROTIDE [Suspect]
     Active Substance: DEFIBROTIDE (BOVINE)
     Indication: VENOOCCLUSIVE DISEASE
  5. SOLIRIS [Suspect]
     Active Substance: ECULIZUMAB
     Indication: ATYPICAL HAEMOLYTIC URAEMIC SYNDROME
     Dosage: 300 MG, QW, STARTED ON DAY +40
     Route: 065

REACTIONS (8)
  - Drug administration error [Unknown]
  - Pulmonary oedema [Unknown]
  - Post procedural haemorrhage [Recovered/Resolved]
  - Thrombocytopenia [Recovered/Resolved]
  - Bone marrow failure [Recovered/Resolved]
  - Atypical haemolytic uraemic syndrome [Recovered/Resolved]
  - Venoocclusive liver disease [Unknown]
  - Anaemia [Recovered/Resolved]
